FAERS Safety Report 8010735-X (Version None)
Quarter: 2011Q4

REPORT INFORMATION
  Report Type: 
  Country: None (occurrence: None)
  Receive Date: 20111228
  Receipt Date: 20111227
  Transmission Date: 20120403
  Serious: Yes (Death)
  Sender: FDA-Public Use
  Company Number: ES-PFIZER INC-2011313518

PATIENT
  Age: 59 Year
  Sex: Male

DRUGS (6)
  1. SUMIAL [Concomitant]
     Indication: HEPATIC CIRRHOSIS
     Dosage: UNK
     Route: 048
     Dates: start: 20020101, end: 20090305
  2. ISOSORBIDE MONONITRATE [Concomitant]
     Indication: HEPATIC CIRRHOSIS
     Dosage: UNK
     Route: 048
     Dates: start: 20020101, end: 20090305
  3. ALDACTONE [Suspect]
     Indication: HEPATIC CIRRHOSIS
     Dosage: UNK
     Route: 048
     Dates: start: 20090226, end: 20090301
  4. FUROSEMIDE [Interacting]
     Indication: HEPATIC CIRRHOSIS
     Dosage: UNK, UNK
     Route: 048
     Dates: start: 20070707, end: 20090225
  5. FUROSEMIDE [Interacting]
     Dosage: UNK , UNK
     Route: 048
     Dates: start: 20090226, end: 20090301
  6. DUPHALAC [Concomitant]
     Indication: HEPATIC CIRRHOSIS
     Dosage: UNK
     Route: 048
     Dates: start: 20090303

REACTIONS (4)
  - HEPATIC ENCEPHALOPATHY [None]
  - DRUG INTERACTION [None]
  - HYPERKALAEMIA [None]
  - RENAL FAILURE ACUTE [None]
